FAERS Safety Report 7243098-8 (Version None)
Quarter: 2011Q1

REPORT INFORMATION
  Report Type: 
  Country: None (occurrence: None)
  Receive Date: 20110125
  Receipt Date: 20101004
  Transmission Date: 20110831
  Serious: Yes (Other)
  Sender: FDA-Public Use
  Company Number: US-AMGEN-KDL442914

PATIENT
  Age: 76 Year
  Sex: Female

DRUGS (6)
  1. THYROID TAB [Concomitant]
     Dosage: UNK UNK, UNK
  2. PREDNISONE [Concomitant]
     Dosage: UNK UNK, UNK
  3. CEPHALEXIN MONOHYDRATE [Concomitant]
     Dosage: 500 MG, TID
  4. OLMESARTAN MEDOXOMIL [Concomitant]
     Dosage: UNK UNK, UNK
  5. CLINDAMYCIN [Concomitant]
     Dosage: 300 MG, QID
  6. PROLIA [Suspect]
     Indication: OSTEOPOROSIS POSTMENOPAUSAL
     Dosage: 60 MG, UNK
     Route: 058
     Dates: start: 20100830

REACTIONS (1)
  - CELLULITIS [None]
